FAERS Safety Report 5578467-5 (Version None)
Quarter: 2007Q4

REPORT INFORMATION
  Report Type: 
  Country: None (occurrence: None)
  Receive Date: 20071227
  Receipt Date: 20071219
  Transmission Date: 20080405
  Serious: Yes (Death)
  Sender: FDA-Public Use
  Company Number: URSO-2007-225

PATIENT
  Age: 60 Year
  Sex: Male

DRUGS (10)
  1. URSODIOL [Suspect]
     Indication: LIVER DISORDER
     Dosage: 600 MG PO
     Route: 048
     Dates: start: 20071022, end: 20071203
  2. CHOLEBINE TABLETS (COLESTILAN) [Suspect]
     Indication: JAUNDICE
     Dosage: 3000 MG PO
     Route: 048
     Dates: start: 20071031, end: 20071111
  3. CHOLEBINE TABLETS (COLESTILAN) [Suspect]
     Indication: PRURITUS
     Dosage: 3000 MG PO
     Route: 048
     Dates: start: 20071031, end: 20071111
  4. HEPSERA (ADEFOVIR PIVOXIL) [Suspect]
     Indication: HEPATITIS B
     Dosage: 10 MG PO
     Route: 048
     Dates: start: 20050101, end: 20071203
  5. ZEFIX (LAMIVUDINE) [Suspect]
     Indication: HEPATITIS B
     Dosage: 100 MG PO
     Route: 048
     Dates: start: 20070913, end: 20071203
  6. NEO-MINOPHAGEN C (GLYCYRRHIZIN) [Suspect]
     Indication: LIVER DISORDER
     Dosage: 5B-2B IV
     Route: 042
     Dates: start: 20071010, end: 20071203
  7. GASTER (FAMOTIDNE) [Suspect]
     Indication: GASTROINTESTINAL HAEMORRHAGE
     Dosage: 40 MG PO
     Route: 048
     Dates: start: 20071012, end: 20071111
  8. ALDACTONE [Suspect]
     Indication: ASCITES
     Dosage: 25 MG PO
     Route: 048
     Dates: start: 20071012, end: 20071203
  9. LASIX [Suspect]
     Indication: ASCITES
     Dosage: 40 MG PO
     Route: 048
     Dates: start: 20071012, end: 20071203
  10. LIVACT (ISOLEUCINE_LEUCINE_VALINE) [Suspect]
     Indication: HYPOPROTEINAEMIA
     Dosage: 12.45 G PO
     Route: 048
     Dates: start: 20071108, end: 20071111

REACTIONS (8)
  - CONDITION AGGRAVATED [None]
  - HEPATIC CIRRHOSIS [None]
  - HEPATITIS B [None]
  - HISTIOCYTOSIS HAEMATOPHAGIC [None]
  - NO THERAPEUTIC RESPONSE [None]
  - PLATELET COUNT DECREASED [None]
  - RENAL DISORDER [None]
  - WHITE BLOOD CELL COUNT DECREASED [None]
